FAERS Safety Report 10771185 (Version 1)
Quarter: 2015Q1

REPORT INFORMATION
  Report Type: Spontaneous
  Country: GB (occurrence: GB)
  Receive Date: 20150206
  Receipt Date: 20150206
  Transmission Date: 20150721
  Serious: Yes (Other)
  Sender: FDA-Public Use
  Company Number: GB-ELI_LILLY_AND_COMPANY-GB201501008835

PATIENT
  Age: 14 Year
  Sex: Female

DRUGS (4)
  1. MICROLAX                           /00285401/ [Concomitant]
     Indication: CONSTIPATION
     Dosage: UNK UNK, UNKNOWN
     Route: 054
  2. SODIUM PICOSULPHATE [Concomitant]
     Indication: CONSTIPATION
     Dosage: 20 ML, UNKNOWN
     Route: 048
  3. FLUOXETINE [Suspect]
     Active Substance: FLUOXETINE\FLUOXETINE HYDROCHLORIDE
     Indication: DEPRESSION
     Dosage: 10 MG, UNKNOWN
     Route: 048
     Dates: start: 20140529, end: 20140612
  4. MOVICOL                            /01749801/ [Concomitant]
     Indication: CONSTIPATION
     Dosage: TWO TO FOUR SACHETS, UNKNOWN
     Route: 048

REACTIONS (7)
  - Nausea [Recovered/Resolved]
  - Infection [Unknown]
  - Oropharyngeal pain [Recovered/Resolved]
  - Emotional distress [Unknown]
  - Vomiting [Recovering/Resolving]
  - Blood disorder [Unknown]
  - Eating disorder [Unknown]

NARRATIVE: CASE EVENT DATE: 20140531
